FAERS Safety Report 6908006-5 (Version None)
Quarter: 2010Q3

REPORT INFORMATION
  Report Type: 
  Country: None (occurrence: None)
  Receive Date: 20100805
  Receipt Date: 20100729
  Transmission Date: 20110219
  Serious: Yes (Hospitalization)
  Sender: FDA-Public Use
  Company Number: US-ELI_LILLY_AND_COMPANY-US201007007644

PATIENT
  Sex: Male

DRUGS (5)
  1. BYETTA [Suspect]
     Indication: TYPE 2 DIABETES MELLITUS
     Dosage: 5 UG, 2/D
     Route: 058
     Dates: start: 20100624, end: 20100723
  2. BYETTA [Suspect]
     Dosage: 10 UG, 2/D
     Route: 058
     Dates: start: 20100724
  3. METFORMIN HCL [Concomitant]
     Dosage: UNK, 2/D
  4. ACTOS [Concomitant]
     Dosage: UNK, EACH MORNING
  5. JANUVIA [Concomitant]
     Dosage: UNK, EACH MORNING

REACTIONS (4)
  - ACCIDENT [None]
  - BLOOD GLUCOSE INCREASED [None]
  - DRUG INEFFECTIVE [None]
  - SURGERY [None]
